FAERS Safety Report 4636378-3 (Version None)
Quarter: 2005Q2

REPORT INFORMATION
  Report Type: 
  Country: None (occurrence: None)
  Receive Date: 20050413
  Receipt Date: 20050413
  Transmission Date: 20051028
  Serious: Yes (Hospitalization)
  Sender: FDA-Public Use
  Company Number: None

PATIENT
  Sex: Male
  Weight: 69.4003 kg

DRUGS (1)
  1. OMEPRAZOLE [Suspect]
     Indication: PROPHYLAXIS
     Dosage: 20 MG  QD ORAL
     Route: 048
     Dates: start: 20041201, end: 20041206

REACTIONS (2)
  - CONDITION AGGRAVATED [None]
  - PLATELET COUNT DECREASED [None]
